FAERS Safety Report 8481858-6 (Version None)
Quarter: 2012Q3

REPORT INFORMATION
  Report Type: 
  Country: None (occurrence: None)
  Receive Date: 20120702
  Receipt Date: 20120625
  Transmission Date: 20120928
  Serious: Yes (Other)
  Sender: FDA-Public Use
  Company Number: AU-PFIZER INC-2012151757

PATIENT
  Sex: Male

DRUGS (4)
  1. PRISTIQ [Interacting]
     Dosage: UNK
  2. OXYCODONE HCL [Suspect]
     Indication: ROTATOR CUFF SYNDROME
     Dosage: 1 DF, 4X/DAY
  3. ACETAMINOPHEN [Concomitant]
     Dosage: UNK
  4. TRAMADOL HCL [Interacting]
     Indication: ROTATOR CUFF SYNDROME
     Dosage: UNK

REACTIONS (19)
  - EUPHORIC MOOD [None]
  - BEDRIDDEN [None]
  - FEELING ABNORMAL [None]
  - DIZZINESS [None]
  - HEADACHE [None]
  - PRURITUS [None]
  - NAUSEA [None]
  - NIGHTMARE [None]
  - CONSTIPATION [None]
  - CONFUSIONAL STATE [None]
  - MICTURITION DISORDER [None]
  - ROTATOR CUFF SYNDROME [None]
  - DRUG INTERACTION [None]
  - SYNCOPE [None]
  - HYPERHIDROSIS [None]
  - PALPITATIONS [None]
  - RASH [None]
  - HALLUCINATION [None]
  - PYREXIA [None]
